FAERS Safety Report 25045658 (Version 1)
Quarter: 2025Q1

REPORT INFORMATION
  Report Type: Spontaneous
  Country: AU (occurrence: AU)
  Receive Date: 20250306
  Receipt Date: 20250306
  Transmission Date: 20250409
  Serious: Yes (Death, Hospitalization, Other)
  Sender: MYLAN
  Company Number: AU-MYLANLABS-2025M1018537

PATIENT
  Age: 47 Year
  Sex: Female

DRUGS (32)
  1. VENLAFAXINE [Suspect]
     Active Substance: VENLAFAXINE HYDROCHLORIDE
     Indication: Product used for unknown indication
  2. VENLAFAXINE [Suspect]
     Active Substance: VENLAFAXINE HYDROCHLORIDE
     Route: 065
  3. VENLAFAXINE [Suspect]
     Active Substance: VENLAFAXINE HYDROCHLORIDE
     Route: 065
  4. VENLAFAXINE [Suspect]
     Active Substance: VENLAFAXINE HYDROCHLORIDE
  5. DULOXETINE [Suspect]
     Active Substance: DULOXETINE
     Indication: Product used for unknown indication
  6. DULOXETINE [Suspect]
     Active Substance: DULOXETINE
     Route: 065
  7. DULOXETINE [Suspect]
     Active Substance: DULOXETINE
     Route: 065
  8. DULOXETINE [Suspect]
     Active Substance: DULOXETINE
  9. OXYCODONE [Suspect]
     Active Substance: OXYCODONE
     Indication: Product used for unknown indication
  10. OXYCODONE [Suspect]
     Active Substance: OXYCODONE
     Route: 065
  11. OXYCODONE [Suspect]
     Active Substance: OXYCODONE
     Route: 065
  12. OXYCODONE [Suspect]
     Active Substance: OXYCODONE
  13. DIAZEPAM [Suspect]
     Active Substance: DIAZEPAM
     Indication: Product used for unknown indication
  14. DIAZEPAM [Suspect]
     Active Substance: DIAZEPAM
     Route: 065
  15. DIAZEPAM [Suspect]
     Active Substance: DIAZEPAM
     Route: 065
  16. DIAZEPAM [Suspect]
     Active Substance: DIAZEPAM
  17. TEMAZEPAM [Suspect]
     Active Substance: TEMAZEPAM
     Indication: Product used for unknown indication
  18. TEMAZEPAM [Suspect]
     Active Substance: TEMAZEPAM
     Route: 065
  19. TEMAZEPAM [Suspect]
     Active Substance: TEMAZEPAM
     Route: 065
  20. TEMAZEPAM [Suspect]
     Active Substance: TEMAZEPAM
  21. OXAZEPAM [Suspect]
     Active Substance: OXAZEPAM
     Indication: Product used for unknown indication
  22. OXAZEPAM [Suspect]
     Active Substance: OXAZEPAM
     Route: 065
  23. OXAZEPAM [Suspect]
     Active Substance: OXAZEPAM
     Route: 065
  24. OXAZEPAM [Suspect]
     Active Substance: OXAZEPAM
  25. MIRTAZAPINE [Suspect]
     Active Substance: MIRTAZAPINE
     Indication: Product used for unknown indication
  26. MIRTAZAPINE [Suspect]
     Active Substance: MIRTAZAPINE
     Route: 065
  27. MIRTAZAPINE [Suspect]
     Active Substance: MIRTAZAPINE
     Route: 065
  28. MIRTAZAPINE [Suspect]
     Active Substance: MIRTAZAPINE
  29. TAPENTADOL [Suspect]
     Active Substance: TAPENTADOL
     Indication: Product used for unknown indication
  30. TAPENTADOL [Suspect]
     Active Substance: TAPENTADOL
     Route: 065
  31. TAPENTADOL [Suspect]
     Active Substance: TAPENTADOL
     Route: 065
  32. TAPENTADOL [Suspect]
     Active Substance: TAPENTADOL

REACTIONS (4)
  - Death [Fatal]
  - Fall [Unknown]
  - Hip fracture [Unknown]
  - Toxicity to various agents [Unknown]

NARRATIVE: CASE EVENT DATE: 20211001
